FAERS Safety Report 5664625-8 (Version None)
Quarter: 2008Q1

REPORT INFORMATION
  Report Type: 
  Country: None (occurrence: None)
  Receive Date: 20080314
  Receipt Date: 20080305
  Transmission Date: 20080703
  Serious: No
  Sender: FDA-Public Use
  Company Number: FR-BAXTER-2008BH001314

PATIENT
  Age: 5 Year

DRUGS (3)
  1. SEVOFLURANE [Suspect]
     Indication: ANAESTHESIA
     Dosage: DOSE UNIT:UNKNOWN
     Route: 055
     Dates: start: 20080212
  2. ATROPIN [Concomitant]
     Route: 054
  3. MIDAZOLAM HCL [Concomitant]
     Route: 054

REACTIONS (5)
  - AGITATION [None]
  - CATATONIA [None]
  - PANIC REACTION [None]
  - SCREAMING [None]
  - STARING [None]
